FAERS Safety Report 4657471-5 (Version None)
Quarter: 2005Q2

REPORT INFORMATION
  Report Type: 
  Country: None (occurrence: None)
  Receive Date: 20050509
  Receipt Date: 20050509
  Transmission Date: 20051028
  Serious: No
  Sender: FDA-Public Use
  Company Number: None

PATIENT
  Age: 25 Year
  Sex: Female
  Weight: 58.9676 kg

DRUGS (4)
  1. LEVAQUIN [Suspect]
     Indication: SINUSITIS
     Dosage: 1 PILL -750- DAILY ORAL
     Route: 048
     Dates: start: 20050502, end: 20050504
  2. GUIAFEN [Concomitant]
  3. RHINOCORT [Concomitant]
  4. NECON [Concomitant]

REACTIONS (8)
  - ANXIETY [None]
  - CARDIAC FLUTTER [None]
  - CHEST PAIN [None]
  - EMOTIONAL DISORDER [None]
  - INSOMNIA [None]
  - MANIA [None]
  - PAIN IN EXTREMITY [None]
  - PARANOIA [None]
